FAERS Safety Report 6286649-2 (Version None)
Quarter: 2009Q3

REPORT INFORMATION
  Report Type: 
  Country: None (occurrence: None)
  Receive Date: 20090728
  Receipt Date: 20090717
  Transmission Date: 20100115
  Serious: Yes (Hospitalization)
  Sender: FDA-Public Use
  Company Number: PHHY2009CA29910

PATIENT
  Sex: Male

DRUGS (1)
  1. EXJADE [Suspect]
     Dosage: 2500 MG, UNK
     Route: 048
     Dates: start: 20090513, end: 20090714

REACTIONS (2)
  - HEPATOMEGALY [None]
  - PAIN [None]
